FAERS Safety Report 5228143-3 (Version None)
Quarter: 2007Q1

REPORT INFORMATION
  Report Type: 
  Country: None (occurrence: None)
  Receive Date: 20070130
  Receipt Date: 20070122
  Transmission Date: 20070707
  Serious: Yes (Other)
  Sender: FDA-Public Use
  Company Number: 2007304194

PATIENT
  Sex: Female

DRUGS (2)
  1. DRAMAMINE [Suspect]
     Dosage: 20 ONCE
     Dates: start: 20070101, end: 20070101
  2. COCAINE (COCAINE) [Suspect]
     Dates: start: 20070101, end: 20070101

REACTIONS (2)
  - DRUG ABUSER [None]
  - SKIN DISCOLOURATION [None]
